FAERS Safety Report 18690862 (Version 7)
Quarter: 2022Q2

REPORT INFORMATION
  Report Type: Report from Study
  Country: FR (occurrence: FR)
  Receive Date: 20210101
  Receipt Date: 20220617
  Transmission Date: 20220720
  Serious: Yes (Hospitalization, Other)
  Sender: FDA-Public Use
  Company Number: FR-TAKEDA-FR201945871

PATIENT
  Age: 61 Year
  Sex: Female

DRUGS (112)
  1. TEDUGLUTIDE [Suspect]
     Active Substance: TEDUGLUTIDE
     Indication: Short-bowel syndrome
     Dosage: 3 MILLIGRAM, QD
     Route: 042
     Dates: start: 20160404, end: 20160824
  2. TEDUGLUTIDE [Suspect]
     Active Substance: TEDUGLUTIDE
     Indication: Short-bowel syndrome
     Dosage: 3 MILLIGRAM, QD
     Route: 042
     Dates: start: 20160404, end: 20160824
  3. TEDUGLUTIDE [Suspect]
     Active Substance: TEDUGLUTIDE
     Indication: Short-bowel syndrome
     Dosage: 3 MILLIGRAM, QD
     Route: 042
     Dates: start: 20160404, end: 20160824
  4. TEDUGLUTIDE [Suspect]
     Active Substance: TEDUGLUTIDE
     Indication: Short-bowel syndrome
     Dosage: 3 MILLIGRAM, QD
     Route: 042
     Dates: start: 20160404, end: 20160824
  5. TEDUGLUTIDE [Suspect]
     Active Substance: TEDUGLUTIDE
     Dosage: 2.8 MILLIGRAM, QD
     Route: 042
     Dates: start: 20160825, end: 20160908
  6. TEDUGLUTIDE [Suspect]
     Active Substance: TEDUGLUTIDE
     Dosage: 2.8 MILLIGRAM, QD
     Route: 042
     Dates: start: 20160825, end: 20160908
  7. TEDUGLUTIDE [Suspect]
     Active Substance: TEDUGLUTIDE
     Dosage: 2.8 MILLIGRAM, QD
     Route: 042
     Dates: start: 20160825, end: 20160908
  8. TEDUGLUTIDE [Suspect]
     Active Substance: TEDUGLUTIDE
     Dosage: 2.8 MILLIGRAM, QD
     Route: 042
     Dates: start: 20160825, end: 20160908
  9. TEDUGLUTIDE [Suspect]
     Active Substance: TEDUGLUTIDE
     Dosage: 2.6 MILLIGRAM, QD
     Route: 042
     Dates: start: 20160909, end: 20160914
  10. TEDUGLUTIDE [Suspect]
     Active Substance: TEDUGLUTIDE
     Dosage: 2.6 MILLIGRAM, QD
     Route: 042
     Dates: start: 20160909, end: 20160914
  11. TEDUGLUTIDE [Suspect]
     Active Substance: TEDUGLUTIDE
     Dosage: 2.6 MILLIGRAM, QD
     Route: 042
     Dates: start: 20160909, end: 20160914
  12. TEDUGLUTIDE [Suspect]
     Active Substance: TEDUGLUTIDE
     Dosage: 2.6 MILLIGRAM, QD
     Route: 042
     Dates: start: 20160909, end: 20160914
  13. TEDUGLUTIDE [Suspect]
     Active Substance: TEDUGLUTIDE
     Dosage: 2.8 MILLIGRAM, QD
     Route: 042
     Dates: start: 20160915, end: 20161107
  14. TEDUGLUTIDE [Suspect]
     Active Substance: TEDUGLUTIDE
     Dosage: 2.8 MILLIGRAM, QD
     Route: 042
     Dates: start: 20160915, end: 20161107
  15. TEDUGLUTIDE [Suspect]
     Active Substance: TEDUGLUTIDE
     Dosage: 2.8 MILLIGRAM, QD
     Route: 042
     Dates: start: 20160915, end: 20161107
  16. TEDUGLUTIDE [Suspect]
     Active Substance: TEDUGLUTIDE
     Dosage: 2.8 MILLIGRAM, QD
     Route: 042
     Dates: start: 20160915, end: 20161107
  17. TEDUGLUTIDE [Suspect]
     Active Substance: TEDUGLUTIDE
     Dosage: 2.6 MILLIGRAM, QD
     Route: 042
     Dates: start: 20161108, end: 20161206
  18. TEDUGLUTIDE [Suspect]
     Active Substance: TEDUGLUTIDE
     Dosage: 2.6 MILLIGRAM, QD
     Route: 042
     Dates: start: 20161108, end: 20161206
  19. TEDUGLUTIDE [Suspect]
     Active Substance: TEDUGLUTIDE
     Dosage: 2.6 MILLIGRAM, QD
     Route: 042
     Dates: start: 20161108, end: 20161206
  20. TEDUGLUTIDE [Suspect]
     Active Substance: TEDUGLUTIDE
     Dosage: 2.6 MILLIGRAM, QD
     Route: 042
     Dates: start: 20161108, end: 20161206
  21. TEDUGLUTIDE [Suspect]
     Active Substance: TEDUGLUTIDE
     Dosage: 2.8 MILLIGRAM, QD
     Route: 042
     Dates: start: 20170214, end: 20170220
  22. TEDUGLUTIDE [Suspect]
     Active Substance: TEDUGLUTIDE
     Dosage: 2.8 MILLIGRAM, QD
     Route: 042
     Dates: start: 20170214, end: 20170220
  23. TEDUGLUTIDE [Suspect]
     Active Substance: TEDUGLUTIDE
     Dosage: 2.8 MILLIGRAM, QD
     Route: 042
     Dates: start: 20170214, end: 20170220
  24. TEDUGLUTIDE [Suspect]
     Active Substance: TEDUGLUTIDE
     Dosage: 2.8 MILLIGRAM, QD
     Route: 042
     Dates: start: 20170214, end: 20170220
  25. TEDUGLUTIDE [Suspect]
     Active Substance: TEDUGLUTIDE
     Dosage: 2.6 MILLIGRAM, QD
     Route: 042
     Dates: start: 20170303, end: 20170411
  26. TEDUGLUTIDE [Suspect]
     Active Substance: TEDUGLUTIDE
     Dosage: 2.6 MILLIGRAM, QD
     Route: 042
     Dates: start: 20170303, end: 20170411
  27. TEDUGLUTIDE [Suspect]
     Active Substance: TEDUGLUTIDE
     Dosage: 2.6 MILLIGRAM, QD
     Route: 042
     Dates: start: 20170303, end: 20170411
  28. TEDUGLUTIDE [Suspect]
     Active Substance: TEDUGLUTIDE
     Dosage: 2.6 MILLIGRAM, QD
     Route: 042
     Dates: start: 20170303, end: 20170411
  29. TEDUGLUTIDE [Suspect]
     Active Substance: TEDUGLUTIDE
     Dosage: 2.8 MILLIGRAM, QD
     Route: 042
     Dates: start: 20170412, end: 20181129
  30. TEDUGLUTIDE [Suspect]
     Active Substance: TEDUGLUTIDE
     Dosage: 2.8 MILLIGRAM, QD
     Route: 042
     Dates: start: 20170412, end: 20181129
  31. TEDUGLUTIDE [Suspect]
     Active Substance: TEDUGLUTIDE
     Dosage: 2.8 MILLIGRAM, QD
     Route: 042
     Dates: start: 20170412, end: 20181129
  32. TEDUGLUTIDE [Suspect]
     Active Substance: TEDUGLUTIDE
     Dosage: 2.8 MILLIGRAM, QD
     Route: 042
     Dates: start: 20170412, end: 20181129
  33. TEDUGLUTIDE [Suspect]
     Active Substance: TEDUGLUTIDE
     Dosage: 2.4 MILLIGRAM, QD
     Route: 042
     Dates: start: 20181130
  34. TEDUGLUTIDE [Suspect]
     Active Substance: TEDUGLUTIDE
     Dosage: 2.4 MILLIGRAM, QD
     Route: 042
     Dates: start: 20181130
  35. TEDUGLUTIDE [Suspect]
     Active Substance: TEDUGLUTIDE
     Dosage: 2.4 MILLIGRAM, QD
     Route: 042
     Dates: start: 20181130
  36. TEDUGLUTIDE [Suspect]
     Active Substance: TEDUGLUTIDE
     Dosage: 2.4 MILLIGRAM, QD
     Route: 042
     Dates: start: 20181130
  37. MAGNESIUM SULFATE [Concomitant]
     Active Substance: MAGNESIUM SULFATE
     Indication: Short-bowel syndrome
     Dosage: 15000 MILLIGRAM
     Route: 042
     Dates: start: 201911
  38. CALCIUM CARBONATE [Concomitant]
     Active Substance: CALCIUM CARBONATE
     Indication: Short-bowel syndrome
     Dosage: 1000 MILLIGRAM, QD
     Route: 048
     Dates: start: 20160409
  39. CALCIUM CARBONATE [Concomitant]
     Active Substance: CALCIUM CARBONATE
     Indication: Supplementation therapy
     Dosage: 500 MILLIGRAM, TID
     Route: 048
     Dates: start: 20190726, end: 2019
  40. CALCIUM CARBONATE [Concomitant]
     Active Substance: CALCIUM CARBONATE
     Dosage: 500 MILLIGRAM, QD
     Route: 048
     Dates: start: 20200214
  41. CHOLECALCIFEROL [Concomitant]
     Active Substance: CHOLECALCIFEROL
     Indication: Short-bowel syndrome
     Dosage: 100000 INTERNATIONAL UNIT, MONTHLY
     Route: 048
     Dates: start: 20200214
  42. WARFARIN [Concomitant]
     Active Substance: WARFARIN
     Indication: Thrombosis prophylaxis
     Dosage: 1 MILLIGRAM, QD
     Route: 048
     Dates: start: 20191009, end: 20191028
  43. WARFARIN [Concomitant]
     Active Substance: WARFARIN
     Indication: Peripheral ischaemia
     Dosage: 2 MILLIGRAM, QD
     Route: 048
     Dates: start: 20191121
  44. WARFARIN [Concomitant]
     Active Substance: WARFARIN
     Dosage: 1.5 MILLIGRAM, QD
     Route: 048
     Dates: start: 20191125
  45. WARFARIN SODIUM [Concomitant]
     Active Substance: WARFARIN SODIUM
     Indication: Prophylaxis
     Dosage: 3.5 MILLIGRAM, QD
     Route: 048
     Dates: start: 201609, end: 201611
  46. WARFARIN SODIUM [Concomitant]
     Active Substance: WARFARIN SODIUM
     Indication: Thrombosis
     Dosage: 1 MILLIGRAM, QD
     Route: 048
     Dates: end: 201611
  47. WARFARIN SODIUM [Concomitant]
     Active Substance: WARFARIN SODIUM
     Dosage: 2 MILLIGRAM, QD
     Route: 048
     Dates: start: 201611
  48. WARFARIN SODIUM [Concomitant]
     Active Substance: WARFARIN SODIUM
     Dosage: 3 MILLIGRAM, QD
     Route: 048
     Dates: start: 201611, end: 201702
  49. WARFARIN SODIUM [Concomitant]
     Active Substance: WARFARIN SODIUM
     Dosage: 3 MILLIGRAM, QD
     Route: 048
     Dates: start: 201611, end: 201709
  50. WARFARIN SODIUM [Concomitant]
     Active Substance: WARFARIN SODIUM
     Dosage: 2 MILLIGRAM, QD
     Route: 048
     Dates: start: 20170307, end: 201705
  51. WARFARIN SODIUM [Concomitant]
     Active Substance: WARFARIN SODIUM
     Dosage: 2 MILLIGRAM, QD
     Route: 048
     Dates: start: 20180413, end: 20191009
  52. WARFARIN SODIUM [Concomitant]
     Active Substance: WARFARIN SODIUM
     Dosage: 3 MILLIGRAM, QD
     Route: 048
     Dates: start: 20190222, end: 20190726
  53. LORAZEPAM [Concomitant]
     Active Substance: LORAZEPAM
     Indication: Short-bowel syndrome
     Dosage: 2 MILLIGRAM
     Route: 048
  54. NEXIUM [Concomitant]
     Active Substance: ESOMEPRAZOLE MAGNESIUM
     Indication: Supplementation therapy
     Dosage: 20 MILLIGRAM, QD
     Route: 048
     Dates: start: 2006, end: 2019
  55. FERROUS SULFATE [Concomitant]
     Active Substance: FERROUS SULFATE
     Indication: Supplementation therapy
     Dosage: 80 MILLIGRAM, QD
     Route: 048
     Dates: end: 20161021
  56. FERROUS SULFATE [Concomitant]
     Active Substance: FERROUS SULFATE
     Indication: Anaemia
     Dosage: 80 MILLIGRAM, QD
     Route: 048
     Dates: start: 201611, end: 201703
  57. VITAMIN B12 [Concomitant]
     Active Substance: CYANOCOBALAMIN
     Indication: Supplementation therapy
     Dosage: 1000 MICROGRAM, 1/WEEK
     Route: 042
     Dates: start: 2006
  58. VITAMIN B12 [Concomitant]
     Active Substance: CYANOCOBALAMIN
     Dosage: UNK UNK, 1/WEEK
     Route: 048
     Dates: start: 20180413
  59. POTASSIUM CHLORIDE [Concomitant]
     Active Substance: POTASSIUM CHLORIDE
     Indication: Supplementation therapy
     Dosage: 600 MILLIGRAM, BID
     Route: 048
     Dates: end: 201612
  60. POTASSIUM CHLORIDE [Concomitant]
     Active Substance: POTASSIUM CHLORIDE
     Dosage: 600 MILLIGRAM, TID
     Route: 048
     Dates: start: 201705
  61. ESCITALOPRAM OXALATE [Concomitant]
     Active Substance: ESCITALOPRAM OXALATE
     Indication: Depression
     Dosage: 10 MILLIGRAM, QD
     Route: 048
  62. CALCIUM [Concomitant]
     Active Substance: CALCIUM
     Indication: Supplementation therapy
     Dosage: 1 GRAM, QD
     Route: 048
     Dates: end: 201612
  63. SODIUM BICARBONATE [Concomitant]
     Active Substance: SODIUM BICARBONATE
     Indication: Supplementation therapy
     Dosage: 500 MILLIGRAM
     Route: 048
     Dates: end: 201612
  64. SODIUM BICARBONATE [Concomitant]
     Active Substance: SODIUM BICARBONATE
     Indication: Short-bowel syndrome
     Dosage: 500 MILLIGRAM, BID
     Route: 048
     Dates: start: 20190726
  65. SODIUM BICARBONATE [Concomitant]
     Active Substance: SODIUM BICARBONATE
     Dosage: 1000 MILLIGRAM, TID
     Route: 048
     Dates: start: 20191024
  66. TAUROLIDINE CITRATE [Concomitant]
     Indication: Thrombosis
     Dosage: 2 MILLILITER
     Route: 042
     Dates: end: 20160630
  67. ALBUMIN HUMAN [Concomitant]
     Active Substance: ALBUMIN HUMAN
     Indication: Hypoalbuminaemia
     Dosage: 40 GRAM, SINGLE
     Route: 042
     Dates: start: 20160907, end: 20160907
  68. CHOLECALCIFEROL [Concomitant]
     Active Substance: CHOLECALCIFEROL
     Indication: Supplementation therapy
     Dosage: 100000 INTERNATIONAL UNIT
     Route: 048
  69. RAMIPRIL [Concomitant]
     Active Substance: RAMIPRIL
     Indication: Blood pressure increased
     Dosage: 5 MILLIGRAM, QD
     Route: 048
  70. Cacit [Concomitant]
     Indication: Supplementation therapy
     Dosage: 500 MILLIGRAM
     Route: 048
     Dates: end: 20171018
  71. CALCIUM PHOSPHATE, DIBASIC, ANHYDROUS\MAGNESIUM GLYCEROPHOSPHATE\PHOSP [Concomitant]
     Active Substance: CALCIUM PHOSPHATE, DIBASIC, ANHYDROUS\MAGNESIUM GLYCEROPHOSPHATE\PHOSPHORIC ACID\SODIUM PHOSPHATE, D
     Indication: Supplementation therapy
     Dosage: 15 GTT DROPS, BID
     Route: 048
  72. CALCIUM PHOSPHATE, DIBASIC, ANHYDROUS\MAGNESIUM GLYCEROPHOSPHATE\PHOSP [Concomitant]
     Active Substance: CALCIUM PHOSPHATE, DIBASIC, ANHYDROUS\MAGNESIUM GLYCEROPHOSPHATE\PHOSPHORIC ACID\SODIUM PHOSPHATE, D
     Indication: Short-bowel syndrome
     Dosage: 25 GTT DROPS, TID
     Route: 048
     Dates: start: 20191116, end: 20191126
  73. .ALPHA.-TOCOPHEROL ACETATE, D- [Concomitant]
     Active Substance: .ALPHA.-TOCOPHEROL ACETATE, D-
     Indication: Supplementation therapy
     Dosage: 500 MILLIGRAM
     Route: 048
     Dates: start: 201311
  74. FUROSEMIDE [Concomitant]
     Active Substance: FUROSEMIDE
     Indication: Oedema peripheral
     Dosage: 80 MILLIGRAM, QD
     Route: 048
     Dates: start: 20160907, end: 20160922
  75. FUROSEMIDE [Concomitant]
     Active Substance: FUROSEMIDE
     Dosage: 80 MILLIGRAM, QD
     Route: 048
     Dates: start: 20161117, end: 20161212
  76. PYRIDOXINE [Concomitant]
     Active Substance: PYRIDOXINE
     Indication: Supplementation therapy
     Dosage: 250 MILLIGRAM, QD
     Route: 048
     Dates: start: 20160922, end: 20161111
  77. THIAMINE HYDROCHLORIDE [Concomitant]
     Active Substance: THIAMINE HYDROCHLORIDE
     Indication: Supplementation therapy
     Dosage: 250 MILLIGRAM, QD
     Route: 048
     Dates: start: 20160922, end: 20161117
  78. MAGNESIUM [Concomitant]
     Active Substance: MAGNESIUM
     Indication: Hypomagnesaemia
     Dosage: UNK, SINGLE
     Route: 042
     Dates: start: 201609, end: 201609
  79. MAGNESIUM [Concomitant]
     Active Substance: MAGNESIUM
     Indication: Supplementation therapy
     Dosage: 150 MILLIGRAM, QID
     Route: 048
     Dates: start: 20181130, end: 20190222
  80. DIPROSONE [Concomitant]
     Active Substance: BETAMETHASONE DIPROPIONATE
     Indication: Eczema
     Dosage: 0.05 UNK, QD
     Route: 061
     Dates: start: 20161117, end: 2017
  81. CEFTRIAXONE [Concomitant]
     Active Substance: CEFTRIAXONE
     Indication: Infection
     Dosage: 1 GRAM, QD
     Route: 048
     Dates: start: 20161229, end: 20170106
  82. AMOXICILLIN [Concomitant]
     Active Substance: AMOXICILLIN
     Indication: Infection
     Dosage: 2 GRAM
     Route: 048
     Dates: start: 20170217, end: 20170217
  83. FLAGYL [Concomitant]
     Active Substance: METRONIDAZOLE\METRONIDAZOLE HYDROCHLORIDE
     Indication: Infection
     Dosage: 500 MILLIGRAM, TID
     Route: 048
     Dates: start: 20170222, end: 20170225
  84. GENTAMICIN [Concomitant]
     Active Substance: GENTAMICIN
     Indication: Infection
     Dosage: 260 MILLIGRAM, QD
     Route: 048
     Dates: start: 20170222, end: 20170224
  85. VANCOMYCIN [Concomitant]
     Active Substance: VANCOMYCIN
     Indication: Infection
     Dosage: 1.60 GRAM, QD
     Route: 042
     Dates: start: 20170224, end: 201709
  86. OFLOXACIN [Concomitant]
     Active Substance: OFLOXACIN
     Indication: Sepsis
     Dosage: 200 MILLIGRAM, TID
     Route: 048
     Dates: start: 20170224, end: 20170430
  87. BACTRIM [Concomitant]
     Active Substance: SULFAMETHOXAZOLE\TRIMETHOPRIM
     Indication: Sepsis
     Dosage: 800 MILLIGRAM, QD
     Route: 048
     Dates: start: 20170224, end: 20170430
  88. LOVENOX [Concomitant]
     Active Substance: ENOXAPARIN SODIUM
     Indication: Jugular vein thrombosis
     Dosage: 0.40 MILLILITER, QD
     Route: 058
     Dates: start: 20170224, end: 201705
  89. LOVENOX [Concomitant]
     Active Substance: ENOXAPARIN SODIUM
     Indication: Superior vena cava syndrome
     Dosage: 0.6 MILLILITER, QD
     Route: 058
     Dates: start: 20170604, end: 20170731
  90. LOVENOX [Concomitant]
     Active Substance: ENOXAPARIN SODIUM
     Dosage: 0.6 MILLILITER, QD
     Route: 058
     Dates: start: 20171013, end: 2018
  91. LOVENOX [Concomitant]
     Active Substance: ENOXAPARIN SODIUM
     Dosage: 6000 INTERNATIONAL UNIT, BID
     Route: 058
     Dates: start: 201710, end: 2018
  92. TRAMADOL HYDROCHLORIDE [Concomitant]
     Active Substance: TRAMADOL HYDROCHLORIDE
     Indication: Back pain
     Dosage: 60 MILLIGRAM, QD
     Route: 048
     Dates: start: 20170217, end: 20170318
  93. TRAMADOL HYDROCHLORIDE [Concomitant]
     Active Substance: TRAMADOL HYDROCHLORIDE
     Dosage: 100 MILLIGRAM
     Route: 048
     Dates: start: 20170518, end: 201705
  94. NEFOPAM [Concomitant]
     Active Substance: NEFOPAM
     Indication: Back pain
     Dosage: UNK
     Route: 042
     Dates: start: 20170217, end: 20170318
  95. NEFOPAM [Concomitant]
     Active Substance: NEFOPAM
     Indication: Pain prophylaxis
     Dosage: 20 MILLIGRAM
     Route: 042
     Dates: start: 20191027, end: 20191121
  96. SODIUM BENZOATE [Concomitant]
     Active Substance: SODIUM BENZOATE
     Indication: Supplementation therapy
     Dosage: 250 MILLIGRAM
     Route: 048
     Dates: start: 20171202
  97. INNOHEP [Concomitant]
     Active Substance: TINZAPARIN SODIUM
     Indication: Superior vena cava syndrome
     Dosage: 10000 INTERNATIONAL UNIT, QD
     Route: 058
     Dates: start: 201705, end: 20170704
  98. CALCIUM BICARBONATE [Concomitant]
     Active Substance: CALCIUM BICARBONATE
     Indication: Supplementation therapy
     Dosage: 600 MILLIGRAM
     Route: 048
     Dates: start: 20160409, end: 20170329
  99. LEUCOVORIN CALCIUM [Concomitant]
     Active Substance: LEUCOVORIN CALCIUM
     Indication: Supplementation therapy
     Dosage: 26 MILLIGRAM, QD
     Route: 048
     Dates: start: 20170607, end: 20170906
  100. CALCIUM\VITAMIN D [Concomitant]
     Active Substance: CALCIUM\VITAMIN D
     Indication: Supplementation therapy
     Dosage: 500 MILLIGRAM, BID
     Route: 048
     Dates: start: 20171013, end: 20180221
  101. EUPANTOL [Concomitant]
     Active Substance: PANTOPRAZOLE SODIUM
     Indication: Short-bowel syndrome
     Dosage: 20 MILLIGRAM, QD
     Route: 048
     Dates: start: 20171013, end: 20180221
  102. PANTOPRAZOLE [Concomitant]
     Active Substance: PANTOPRAZOLE
     Indication: Prophylaxis
     Dosage: 20 MILLIGRAM, QD
     Route: 048
     Dates: start: 20191009
  103. THIAMINE [Concomitant]
     Active Substance: THIAMINE
     Indication: Short-bowel syndrome
     Dosage: 250 MILLIGRAM, QD
     Route: 048
     Dates: start: 20191016
  104. PYRIDOXINE [Concomitant]
     Active Substance: PYRIDOXINE
     Indication: Short-bowel syndrome
     Dosage: 250 MILLIGRAM, QD
     Route: 048
     Dates: start: 20191009
  105. POTASSIUM CHLORIDE [Concomitant]
     Active Substance: POTASSIUM CHLORIDE
     Indication: Short-bowel syndrome
     Dosage: 600 MILLIGRAM, TID
     Route: 048
     Dates: start: 20191021
  106. ENOXAPARIN [Concomitant]
     Active Substance: ENOXAPARIN
     Indication: Peripheral ischaemia
     Dosage: 6000 INTERNATIONAL UNIT, BID
     Route: 058
     Dates: start: 20191009, end: 20191128
  107. ASPIRIN [Concomitant]
     Active Substance: ASPIRIN
     Indication: Prophylaxis
     Dosage: 75 MILLIGRAM, QD
     Route: 048
     Dates: start: 20191026, end: 20191124
  108. Phosphore [Concomitant]
     Indication: Short-bowel syndrome
     Dosage: UNK
     Route: 042
     Dates: start: 20191104
  109. TRAMADOL HYDROCHLORIDE [Concomitant]
     Active Substance: TRAMADOL HYDROCHLORIDE
     Indication: Pain prophylaxis
     Dosage: 50 MILLIGRAM
     Route: 048
     Dates: start: 20191024
  110. ACETAMINOPHEN [Concomitant]
     Active Substance: ACETAMINOPHEN
     Indication: Pain prophylaxis
     Dosage: 500 MILLIGRAM, TID
     Route: 048
     Dates: start: 20191009
  111. MAGNESIUM CITRATE [Concomitant]
     Active Substance: MAGNESIUM CITRATE
     Indication: Short-bowel syndrome
     Dosage: 200 MILLIGRAM, TID
     Route: 048
     Dates: start: 20191017, end: 20191121
  112. CALCIUM GLUCONATE [Concomitant]
     Active Substance: CALCIUM GLUCONATE
     Indication: Short-bowel syndrome
     Dosage: 15000 MILLIGRAM
     Route: 042
     Dates: start: 201911

REACTIONS (3)
  - Vascular device infection [Recovered/Resolved]
  - Peripheral arterial occlusive disease [Recovered/Resolved with Sequelae]
  - Intermittent claudication [Recovered/Resolved]

NARRATIVE: CASE EVENT DATE: 20190905
